FAERS Safety Report 17161825 (Version 2)
Quarter: 2020Q1

REPORT INFORMATION
  Report Type: Spontaneous
  Country: GB (occurrence: GB)
  Receive Date: 20191217
  Receipt Date: 20200110
  Transmission Date: 20200409
  Serious: Yes (Hospitalization, Other)
  Sender: FDA-Public Use
  Company Number: GB-AUROBINDO-AUR-APL-2019-065435

PATIENT
  Age: 54 Year
  Sex: Male
  Weight: 93 kg

DRUGS (17)
  1. ALFACALCIDOL [Concomitant]
     Active Substance: ALFACALCIDOL
     Indication: PRODUCT USED FOR UNKNOWN INDICATION
     Dosage: 0.75 MICROGRAM, EVERY WEEK, ((MONDAY, WEDNESDAY AND FRIDAY)
     Route: 065
  2. FUROSEMIDE. [Concomitant]
     Active Substance: FUROSEMIDE
     Indication: PRODUCT USED FOR UNKNOWN INDICATION
     Dosage: 1 DOSAGE FORM, ONCE A DAY,40-80 MG, MORNING
     Route: 065
  3. LORATADINE. [Concomitant]
     Active Substance: LORATADINE
     Indication: PRODUCT USED FOR UNKNOWN INDICATION
     Dosage: 10 MILLIGRAM, ONCE A DAY,MORNING
     Route: 065
  4. OMEPRAZOLE. [Concomitant]
     Active Substance: OMEPRAZOLE
     Indication: PRODUCT USED FOR UNKNOWN INDICATION
     Dosage: 20 MILLIGRAM, ONCE A DAY
     Route: 065
  5. RINATEC [Concomitant]
     Dosage: 4 DOSAGE FORM, ONCE A DAY,PUFFS, IN EACH NOSTRIL
     Route: 065
  6. SODIUM HYDROGEN CARBONATE [Concomitant]
     Active Substance: SODIUM BICARBONATE
     Indication: PRODUCT USED FOR UNKNOWN INDICATION
     Dosage: 1000 MILLIGRAM, ONCE A DAY
     Route: 065
  7. ADOPORT [Interacting]
     Active Substance: TACROLIMUS
     Indication: GLOMERULONEPHRITIS MEMBRANOUS
     Dosage: 8 MILLIGRAM, ONCE A DAY
     Route: 048
     Dates: end: 20190903
  8. RINATEC [Concomitant]
     Indication: PRODUCT USED FOR UNKNOWN INDICATION
     Dosage: 2 DOSAGE FORM, ONCE A DAY (PUFFS, IN EACH NOSTRIL )
     Route: 065
  9. ADOPORT [Interacting]
     Active Substance: TACROLIMUS
     Dosage: 4 MILLIGRAM, ONCE A DAY
     Route: 048
     Dates: end: 20190903
  10. ARANESP [Concomitant]
     Active Substance: DARBEPOETIN ALFA
     Indication: PRODUCT USED FOR UNKNOWN INDICATION
     Dosage: 40 MICROGRAM, 2 WEEKS
     Route: 065
  11. ATORVASTATIN [Concomitant]
     Active Substance: ATORVASTATIN
     Indication: PRODUCT USED FOR UNKNOWN INDICATION
     Dosage: 40 MILLIGRAM, ONCE A DAY
     Route: 065
  12. RAMIPRIL. [Concomitant]
     Active Substance: RAMIPRIL
     Indication: PRODUCT USED FOR UNKNOWN INDICATION
     Dosage: 5 MILLIGRAM, ONCE A DAY
     Route: 065
  13. SODIUM HYDROGEN CARBONATE [Concomitant]
     Active Substance: SODIUM BICARBONATE
     Dosage: 2000 MILLIGRAM, ONCE A DAY
     Route: 065
  14. CLARITHROMYCIN. [Suspect]
     Active Substance: CLARITHROMYCIN
     Indication: SINUSITIS
     Dosage: 250 MILLIGRAM, ONCE A DAY
     Route: 048
     Dates: start: 20190809
  15. DOXAZOSIN [Concomitant]
     Active Substance: DOXAZOSIN MESYLATE
     Indication: PRODUCT USED FOR UNKNOWN INDICATION
     Dosage: 8 MILLIGRAM, ONCE A DAY,MORNING
     Route: 065
  16. ALFACALCIDOL [Concomitant]
     Active Substance: ALFACALCIDOL
     Dosage: 0.25 MICROGRAM, EVERY WEEK (MONDAY, WEDNESDAY AND FRIDAY)
     Route: 065
  17. AZATHIOPRINE. [Concomitant]
     Active Substance: AZATHIOPRINE
     Indication: PRODUCT USED FOR UNKNOWN INDICATION
     Dosage: 50 MILLIGRAM, ONCE A DAY
     Route: 065

REACTIONS (4)
  - Diarrhoea [Recovering/Resolving]
  - Toxicity to various agents [Recovering/Resolving]
  - Labelled drug-drug interaction medication error [Unknown]
  - Acute kidney injury [Recovering/Resolving]

NARRATIVE: CASE EVENT DATE: 20190830
